FAERS Safety Report 7605042-0 (Version None)
Quarter: 2011Q3

REPORT INFORMATION
  Report Type: 
  Country: None (occurrence: None)
  Receive Date: 20110713
  Receipt Date: 20110707
  Transmission Date: 20111222
  Serious: Yes (Hospitalization)
  Sender: FDA-Public Use
  Company Number: ES-BRISTOL-MYERS SQUIBB COMPANY-15882640

PATIENT
  Age: 80 Year
  Sex: Female

DRUGS (6)
  1. COAPROVEL FILM-COATED TABS 150/12.5 MG [Suspect]
     Indication: HYPERTENSION
     Dosage: 1 DF: 150/12.5MG
     Route: 048
     Dates: start: 20100706, end: 20100903
  2. ACETAMINOPHEN [Concomitant]
     Indication: ARTHRITIS
     Route: 048
     Dates: start: 20100706
  3. IBUPROFEN [Suspect]
     Indication: BONE PAIN
     Route: 048
     Dates: start: 20100706, end: 20100903
  4. PANTOPRAZOLE [Concomitant]
     Indication: ARTHRITIS
     Route: 048
     Dates: start: 20100706
  5. MYOLASTAN [Concomitant]
     Indication: ARTHRITIS
     Dosage: COATED TABS
     Route: 048
     Dates: start: 20100706
  6. COLCHICINE [Suspect]
     Indication: ARTHRITIS
     Dosage: TABS
     Route: 048
     Dates: start: 20100706, end: 20100903

REACTIONS (2)
  - DIARRHOEA [None]
  - CHOLESTASIS [None]
